FAERS Safety Report 5377227-8 (Version None)
Quarter: 2007Q2

REPORT INFORMATION
  Report Type: 
  Country: None (occurrence: None)
  Receive Date: 20070530
  Receipt Date: 20070213
  Transmission Date: 20071010
  Serious: No
  Sender: FDA-Public Use
  Company Number: 2007PV030058

PATIENT
  Age: 47 Year
  Sex: Female
  Weight: 90.7194 kg

DRUGS (1)
  1. BYETTA [Suspect]
     Indication: DIABETES MELLITUS NON-INSULIN-DEPENDENT
     Dosage: 5 MCG; BID; SC
     Route: 058
     Dates: start: 20070123

REACTIONS (7)
  - ASTHENIA [None]
  - DECREASED APPETITE [None]
  - DYSGEUSIA [None]
  - NAUSEA [None]
  - RHINORRHOEA [None]
  - STOMACH DISCOMFORT [None]
  - VOMITING [None]
